FAERS Safety Report 13570970 (Version 1)
Quarter: 2017Q2

REPORT INFORMATION
  Report Type: Report from Study
  Country: US (occurrence: US)
  Receive Date: 20170523
  Receipt Date: 20170523
  Transmission Date: 20170830
  Serious: Yes (Other)
  Sender: FDA-Public Use
  Company Number: US-ROCHE-1938041

PATIENT
  Sex: Male

DRUGS (1)
  1. LUCENTIS [Suspect]
     Active Substance: RANIBIZUMAB
     Indication: NEOVASCULAR AGE-RELATED MACULAR DEGENERATION
     Dosage: ONGOING : YES
     Route: 050

REACTIONS (3)
  - Cerebrovascular accident [Not Recovered/Not Resolved]
  - Dysphonia [Not Recovered/Not Resolved]
  - Dysarthria [Not Recovered/Not Resolved]
